FAERS Safety Report 8230978-X (Version None)
Quarter: 2012Q1

REPORT INFORMATION
  Report Type: 
  Country: None (occurrence: None)
  Receive Date: 20120323
  Receipt Date: 20120320
  Transmission Date: 20120608
  Serious: Yes (Death, Hospitalization)
  Sender: FDA-Public Use
  Company Number: US-SANOFI-AVENTIS-2012SA019344

PATIENT
  Age: 55 Year
  Sex: Female
  Weight: 46.8 kg

DRUGS (5)
  1. FLUOROURACIL [Suspect]
     Route: 065
     Dates: start: 20110907, end: 20110907
  2. LEUCOVORIN CALCIUM [Suspect]
     Route: 065
     Dates: start: 20110907
  3. BEVACIZUMAB [Suspect]
     Dosage: DOS
     Route: 065
     Dates: start: 20110907
  4. OXALIPLATIN [Suspect]
     Route: 065
     Dates: start: 20110907
  5. FLUOROURACIL [Suspect]
     Dosage: INFUSION
     Route: 065
     Dates: start: 20110907

REACTIONS (1)
  - PANCYTOPENIA [None]
